FAERS Safety Report 24575163 (Version 1)
Quarter: 2024Q4

REPORT INFORMATION
  Report Type: Spontaneous
  Country: PR (occurrence: PR)
  Receive Date: 20241104
  Receipt Date: 20241104
  Transmission Date: 20250115
  Serious: No
  Sender: JOHNSON AND JOHNSON
  Company Number: PR-JNJFOC-20241029387

PATIENT
  Age: 81 Year
  Sex: Male

DRUGS (2)
  1. ERLEADA [Suspect]
     Active Substance: APALUTAMIDE
     Indication: Prostate cancer
     Route: 065
  2. PANADOL [Concomitant]
     Active Substance: ACETAMINOPHEN

REACTIONS (4)
  - Rash erythematous [Unknown]
  - Skin discolouration [Recovering/Resolving]
  - Injury [Recovering/Resolving]
  - Pain in jaw [Recovering/Resolving]
